FAERS Safety Report 8343034-7 (Version None)
Quarter: 2012Q2

REPORT INFORMATION
  Report Type: 
  Country: None (occurrence: None)
  Receive Date: 20120508
  Receipt Date: 20120427
  Transmission Date: 20120825
  Serious: Yes (Other)
  Sender: FDA-Public Use
  Company Number: PHHY2012BR030897

PATIENT
  Age: 50 Year
  Sex: Male

DRUGS (7)
  1. OXCARBAZEPINE [Concomitant]
     Dosage: 300 MG, BID
  2. TRILEPTAL [Suspect]
     Indication: AGITATION
  3. OXCARBAZEPINE [Concomitant]
     Dosage: 600 MG, QD
  4. TRILEPTAL [Suspect]
     Indication: EPILEPSY
     Dosage: 1 DF AT NIGHT
  5. HALDOL [Concomitant]
     Dosage: 5 MG, UNK
  6. TRILEPTAL [Suspect]
     Indication: NERVOUSNESS
  7. CLONAZEPAM [Concomitant]

REACTIONS (18)
  - DIZZINESS [None]
  - NAUSEA [None]
  - SELF INJURIOUS BEHAVIOUR [None]
  - DISABILITY [None]
  - MEMORY IMPAIRMENT [None]
  - RETCHING [None]
  - COUGH [None]
  - DEPRESSION [None]
  - CARDIAC MURMUR [None]
  - HEAD DISCOMFORT [None]
  - FEELING ABNORMAL [None]
  - MALAISE [None]
  - HEADACHE [None]
  - DYSGEUSIA [None]
  - SLEEP DISORDER [None]
  - SOMNOLENCE [None]
  - PAIN [None]
  - RESTLESSNESS [None]
